FAERS Safety Report 7517073-X (Version None)
Quarter: 2011Q2

REPORT INFORMATION
  Report Type: 
  Country: None (occurrence: None)
  Receive Date: 20110526
  Receipt Date: 20110526
  Transmission Date: 20111010
  Serious: Yes (Other)
  Sender: FDA-Public Use
  Company Number: None

PATIENT
  Age: 71 Year
  Sex: Female
  Weight: 68.0396 kg

DRUGS (1)
  1. AZATHIOPRINE [Suspect]
     Indication: CONGENITAL SYPHILITIC OSTEOCHONDRITIS
     Dosage: 2 TABLETS DAILY 1 AM PM
     Dates: start: 20110322, end: 20110429

REACTIONS (16)
  - THROAT IRRITATION [None]
  - ABDOMINAL PAIN UPPER [None]
  - COUGH [None]
  - HYPOAESTHESIA [None]
  - PRODUCT SUBSTITUTION ISSUE [None]
  - HEADACHE [None]
  - INCREASED UPPER AIRWAY SECRETION [None]
  - EAR PAIN [None]
  - MUSCLE SPASMS [None]
  - DYSPNOEA [None]
  - ASTHENIA [None]
  - WHEEZING [None]
  - MALAISE [None]
  - PRODUCT QUALITY ISSUE [None]
  - DIARRHOEA [None]
  - CHEST PAIN [None]
